FAERS Safety Report 7638952-9 (Version None)
Quarter: 2011Q3

REPORT INFORMATION
  Report Type: 
  Country: None (occurrence: None)
  Receive Date: 20110725
  Receipt Date: 20110725
  Transmission Date: 20111222
  Serious: Yes (Hospitalization)
  Sender: FDA-Public Use
  Company Number: None

PATIENT
  Age: 87 Year
  Sex: Male
  Weight: 92.9 kg

DRUGS (1)
  1. PIPERACILLIN AND TAZOBACTAM [Suspect]
     Indication: UPPER RESPIRATORY TRACT INFECTION
     Dosage: 3.375 GM QID IV
     Route: 042
     Dates: start: 20110624, end: 20110629

REACTIONS (1)
  - RASH [None]
